FAERS Safety Report 15570939 (Version 1)
Quarter: 2018Q4

REPORT INFORMATION
  Report Type: Spontaneous
  Country: US (occurrence: US)
  Receive Date: 20181031
  Receipt Date: 20181031
  Transmission Date: 20190205
  Serious: Yes (Hospitalization, Other)
  Sender: FDA-Public Use
  Company Number: US-ENDO PHARMACEUTICALS INC-2018-042657

PATIENT
  Age: 53 Year
  Sex: Male
  Weight: 71.02 kg

DRUGS (4)
  1. TESTOPEL [Suspect]
     Active Substance: TESTOSTERONE
     Indication: ANDROGEN REPLACEMENT THERAPY
     Dosage: 8 PELLETS (75 MG IN EACH PELLET) INSERTED PER OFFICE VISIT FOR EVERY 3 MONTHS
     Route: 058
     Dates: start: 20170221
  2. VIAGRA [Concomitant]
     Active Substance: SILDENAFIL CITRATE
     Indication: PRODUCT USED FOR UNKNOWN INDICATION
     Dosage: 25 MG, 1 HOUR PRIOR TO INTERCOURSE NO MORE THAN 3 WEEKS
     Route: 048
     Dates: start: 20170106
  3. CHANTIX [Concomitant]
     Active Substance: VARENICLINE TARTRATE
     Indication: PRODUCT USED FOR UNKNOWN INDICATION
     Dosage: TAKE AS DIRECTED
     Route: 048
     Dates: start: 20170106
  4. ALDARA [Concomitant]
     Active Substance: IMIQUIMOD
     Indication: PRODUCT USED FOR UNKNOWN INDICATION
     Dosage: 5% CREAM, APPLY TO THE AFFECTED AREA 3 TIMES WEEKLY FOR 16 WEEKS
     Route: 061
     Dates: start: 20170127

REACTIONS (5)
  - Cardiac failure congestive [Unknown]
  - Acute myocardial infarction [Unknown]
  - Leukocytosis [Not Recovered/Not Resolved]
  - Hypertension [Recovered/Resolved]
  - Prescribed overdose [Unknown]

NARRATIVE: CASE EVENT DATE: 20170221
